FAERS Safety Report 20801408 (Version 1)
Quarter: 2022Q2

REPORT INFORMATION
  Report Type: Spontaneous
  Country: US (occurrence: None)
  Receive Date: 20220508
  Receipt Date: 20220508
  Transmission Date: 20220720
  Serious: Yes (Life-Threatening, Hospitalization, Disabling, Other)
  Sender: FDA-Public Use
  Company Number: None

PATIENT
  Age: 96 Year
  Sex: Male
  Weight: 76.5 kg

DRUGS (10)
  1. VEKLURY [Suspect]
     Active Substance: REMDESIVIR
     Indication: COVID-19 pneumonia
     Dosage: FREQUENCY : DAILY;?
     Route: 042
     Dates: start: 20220212, end: 20220214
  2. DEVICE [Concomitant]
     Active Substance: DEVICE
  3. oxygen concentrator [Concomitant]
  4. ARMOUR THYROID [Concomitant]
  5. TYLENOL [Concomitant]
     Active Substance: ACETAMINOPHEN
  6. VITAMIN C [Concomitant]
     Active Substance: ASCORBIC ACID
  7. VITAMIN D3 [Concomitant]
     Active Substance: CHOLECALCIFEROL
  8. ZINC [Concomitant]
     Active Substance: ZINC
  9. QUERCETIN [Concomitant]
     Active Substance: QUERCETIN
  10. IRON [Concomitant]
     Active Substance: IRON

REACTIONS (10)
  - Product prescribing issue [None]
  - Drug monitoring procedure not performed [None]
  - Depressed level of consciousness [None]
  - Disorientation [None]
  - Lung disorder [None]
  - Pleural effusion [None]
  - Acute kidney injury [None]
  - Renal failure [None]
  - General physical health deterioration [None]
  - Product administration error [None]

NARRATIVE: CASE EVENT DATE: 20220213
